FAERS Safety Report 4350485-4 (Version None)
Quarter: 2004Q2

REPORT INFORMATION
  Report Type: 
  Country: None (occurrence: None)
  Receive Date: 20040430
  Receipt Date: 20040421
  Transmission Date: 20050107
  Serious: Yes (Life-Threatening)
  Sender: FDA-Public Use
  Company Number: PHBS2004GR05529

PATIENT
  Age: 72 Year
  Sex: Male

DRUGS (2)
  1. ZOMETA [Suspect]
     Route: 065
  2. ANTIDIABETICS [Concomitant]

REACTIONS (1)
  - CARDIAC FAILURE [None]
